FAERS Safety Report 6770424-6 (Version None)
Quarter: 2010Q2

REPORT INFORMATION
  Report Type: 
  Country: None (occurrence: None)
  Receive Date: 20100615
  Receipt Date: 20100607
  Transmission Date: 20101027
  Serious: Yes (Disabling)
  Sender: FDA-Public Use
  Company Number: CA-ASTRAZENECA-2010SE27186

PATIENT
  Sex: Female

DRUGS (1)
  1. CRESTOR [Suspect]
     Route: 048

REACTIONS (13)
  - ARTHRALGIA [None]
  - CONDITION AGGRAVATED [None]
  - CONSTIPATION [None]
  - GAIT DISTURBANCE [None]
  - HEADACHE [None]
  - KNEE ARTHROPLASTY [None]
  - MUSCLE SPASMS [None]
  - MUSCULOSKELETAL PAIN [None]
  - MUSCULOSKELETAL STIFFNESS [None]
  - NAUSEA [None]
  - RENAL DISORDER [None]
  - SLEEP DISORDER [None]
  - URTICARIA [None]
